FAERS Safety Report 6259248-6 (Version None)
Quarter: 2009Q3

REPORT INFORMATION
  Report Type: 
  Country: None (occurrence: None)
  Receive Date: 20090707
  Receipt Date: 20090623
  Transmission Date: 20100115
  Serious: Yes (Other)
  Sender: FDA-Public Use
  Company Number: CA-GENENTECH-280883

PATIENT
  Sex: Female

DRUGS (2)
  1. OMALIZUMAB [Suspect]
     Indication: DRUG USE FOR UNKNOWN INDICATION
     Dosage: 300 UNK, X4
     Route: 058
     Dates: start: 20070612
  2. PREDNISONE TAB [Concomitant]
     Indication: DRUG USE FOR UNKNOWN INDICATION

REACTIONS (11)
  - BLOOD PRESSURE DECREASED [None]
  - COUGH [None]
  - DYSPNOEA EXERTIONAL [None]
  - FATIGUE [None]
  - HEART RATE INCREASED [None]
  - HYPERSENSITIVITY [None]
  - LUNG DISORDER [None]
  - PNEUMONIA [None]
  - PRODUCTIVE COUGH [None]
  - SINUS CONGESTION [None]
  - STRESS [None]
